FAERS Safety Report 17704356 (Version 2)
Quarter: 2020Q2

REPORT INFORMATION
  Report Type: Report from Study
  Country: US (occurrence: US)
  Receive Date: 20200424
  Receipt Date: 20200625
  Transmission Date: 20200714
  Serious: Yes (Hospitalization)
  Sender: FDA-Public Use
  Company Number: US-EISAI MEDICAL RESEARCH-EC-2020-071566

PATIENT
  Age: 59 Year
  Sex: Male

DRUGS (2)
  1. LENVIMA [Suspect]
     Active Substance: LENVATINIB
     Route: 048
     Dates: start: 20200304, end: 20200615
  2. LENVIMA [Suspect]
     Active Substance: LENVATINIB
     Indication: HEPATOCELLULAR CARCINOMA
     Route: 048
     Dates: start: 20200229, end: 2020

REACTIONS (16)
  - Decreased appetite [Unknown]
  - Somnolence [Not Recovered/Not Resolved]
  - Loss of personal independence in daily activities [Not Recovered/Not Resolved]
  - Weight decreased [Unknown]
  - Haematochezia [Unknown]
  - Diarrhoea [Not Recovered/Not Resolved]
  - Pyrexia [Not Recovered/Not Resolved]
  - Muscle spasms [Unknown]
  - Hypersomnia [Unknown]
  - Fatigue [Not Recovered/Not Resolved]
  - Impaired self-care [Not Recovered/Not Resolved]
  - Disorientation [Not Recovered/Not Resolved]
  - Blood pressure increased [Recovered/Resolved]
  - Hyperammonaemia [Recovered/Resolved]
  - Aggression [Not Recovered/Not Resolved]
  - Pruritus [Unknown]

NARRATIVE: CASE EVENT DATE: 2020
